FAERS Safety Report 8435475-4 (Version None)
Quarter: 2012Q2

REPORT INFORMATION
  Report Type: 
  Country: None (occurrence: None)
  Receive Date: 20120614
  Receipt Date: 20120611
  Transmission Date: 20120825
  Serious: Yes (Other)
  Sender: FDA-Public Use
  Company Number: FR-TEVA-339216ISR

PATIENT
  Age: 44 Year
  Sex: Male

DRUGS (9)
  1. METHADONE HCL [Interacting]
     Route: 065
  2. BISOPROLOL FUMARATE [Suspect]
     Indication: LONG QT SYNDROME
     Dosage: ONE TABLET PER DAY
     Route: 065
  3. ALPRAZOLAM [Concomitant]
     Dosage: SIX 0.5MG TABLETS/DAY
     Route: 065
  4. NEBIVOLOL [Suspect]
     Route: 065
  5. PAROXETINE [Interacting]
     Dosage: 20 MG/DAY
     Route: 065
  6. METHADONE HCL [Interacting]
     Indication: DEPENDENCE
     Dosage: 160 MG/DAY
     Route: 065
  7. BISOPROLOL FUMARATE [Suspect]
     Indication: VENTRICULAR ARRHYTHMIA
     Dosage: ONE TABLET PER DAY
     Route: 065
  8. METHADONE HCL [Interacting]
     Indication: DRUG ABUSE
     Dosage: ^IN THE REGION OF 250MG^
     Route: 065
  9. NEBIVOLOL [Suspect]
     Route: 065

REACTIONS (8)
  - VENTRICULAR TACHYCARDIA [None]
  - EXTRASYSTOLES [None]
  - DRUG ABUSE [None]
  - DRUG INTERACTION [None]
  - SYNCOPE [None]
  - BRADYCARDIA [None]
  - TORSADE DE POINTES [None]
  - ELECTROCARDIOGRAM QT PROLONGED [None]
